FAERS Safety Report 19013534 (Version 1)
Quarter: 2021Q1

REPORT INFORMATION
  Report Type: Spontaneous
  Country: US (occurrence: US)
  Receive Date: 20210315
  Receipt Date: 20210315
  Transmission Date: 20210420
  Serious: Yes (Other)
  Sender: FDA-Public Use
  Company Number: US-ANIPHARMA-2021-US-004096

PATIENT
  Age: 59 Year
  Sex: Female

DRUGS (1)
  1. CARBIDOPA AND LEVODOPA (NON?SPECIFIC) [Suspect]
     Active Substance: CARBIDOPA\LEVODOPA
     Indication: PARKINSONISM

REACTIONS (1)
  - Hypersensitivity vasculitis [Unknown]
